FAERS Safety Report 5644128-7 (Version None)
Quarter: 2008Q1

REPORT INFORMATION
  Report Type: 
  Country: None (occurrence: None)
  Receive Date: 20080227
  Receipt Date: 20080220
  Transmission Date: 20080703
  Serious: Yes (Hospitalization, Disabling)
  Sender: FDA-Public Use
  Company Number: A0710999A

PATIENT
  Age: 50 Year
  Sex: Male

DRUGS (4)
  1. LAMICTAL [Suspect]
     Indication: BIPOLAR DISORDER
     Dosage: 150 MG/TWICE PER DAY/ORAL
     Route: 048
  2. FLUXETINE HYDROCHLORIDE [Concomitant]
  3. ATORVASTATIN CALCIUM [Concomitant]
  4. LORAZEPAM [Concomitant]

REACTIONS (1)
  - MENINGITIS VIRAL [None]
